FAERS Safety Report 15306339 (Version 1)
Quarter: 2018Q3

REPORT INFORMATION
  Report Type: Spontaneous
  Country: US (occurrence: US)
  Receive Date: 20180810
  Receipt Date: 20180810
  Transmission Date: 20181010
  Serious: Yes (Hospitalization)
  Sender: FDA-Public Use
  Company Number: None

PATIENT
  Age: 82 Year
  Sex: Female
  Weight: 51.2 kg

DRUGS (1)
  1. NIVOLUMAB [Suspect]
     Active Substance: NIVOLUMAB
     Indication: NON-SMALL CELL LUNG CANCER METASTATIC
     Dates: start: 20180222, end: 20180606

REACTIONS (6)
  - Lymphadenopathy mediastinal [None]
  - Lung consolidation [None]
  - Respiratory failure [None]
  - Pneumonitis [None]
  - Pneumonia [None]
  - Hilar lymphadenopathy [None]

NARRATIVE: CASE EVENT DATE: 20180622
